FAERS Safety Report 4861437-X (Version None)
Quarter: 2005Q4

REPORT INFORMATION
  Report Type: 
  Country: None (occurrence: None)
  Receive Date: 20051220
  Receipt Date: 20051213
  Transmission Date: 20060501
  Serious: Yes (Hospitalization)
  Sender: FDA-Public Use
  Company Number: US-JNJFOC-20051203445

PATIENT
  Age: 89 Year
  Sex: Male
  Weight: 69.85 kg

DRUGS (3)
  1. DURAGESIC-100 [Suspect]
     Indication: ARTHRITIS
     Dosage: 2-25 UG/HR PATCHES
     Route: 062
  2. DURAGESIC-100 [Suspect]
     Indication: FIBROMYALGIA
     Route: 062
  3. ACIPHEX [Concomitant]
     Indication: GASTROINTESTINAL DISORDER
     Dates: start: 20051201

REACTIONS (3)
  - DRUG INEFFECTIVE [None]
  - GASTRIC DISORDER [None]
  - SEDATION [None]
